FAERS Safety Report 21231955 (Version 1)
Quarter: 2022Q3

REPORT INFORMATION
  Report Type: Spontaneous
  Country: JP (occurrence: JP)
  Receive Date: 20220819
  Receipt Date: 20220819
  Transmission Date: 20221026
  Serious: Yes (Life-Threatening, Hospitalization, Other)
  Sender: FDA-Public Use
  Company Number: JP-ALS-000764

PATIENT
  Age: 64 Year
  Sex: Male
  Weight: 56.4 kg

DRUGS (7)
  1. METFORMIN [Suspect]
     Active Substance: METFORMIN HYDROCHLORIDE
     Indication: Type 2 diabetes mellitus
     Dosage: 250 MG X 2/DAY
     Route: 065
  2. VILDAGLIPTIN [Concomitant]
     Active Substance: VILDAGLIPTIN
     Indication: Product used for unknown indication
     Dosage: 50 MG X 2/DAY
     Route: 065
  3. PREGABALIN [Concomitant]
     Active Substance: PREGABALIN
     Indication: Product used for unknown indication
     Dosage: 75 MG X 2/DAY
     Route: 065
  4. TRAMADOL HYDROCHLORIDE [Concomitant]
     Active Substance: TRAMADOL HYDROCHLORIDE
     Indication: Product used for unknown indication
     Dosage: 37.5 MG X 2/DAY
     Route: 065
  5. ACETAMINOPHEN [Concomitant]
     Active Substance: ACETAMINOPHEN
     Indication: Product used for unknown indication
     Dosage: 325 MG X 2/DAY
     Route: 065
  6. FEBUXOSTAT [Concomitant]
     Active Substance: FEBUXOSTAT
     Indication: Product used for unknown indication
     Dosage: 20 MG X 2/DAY
     Route: 065
  7. BROTIZOLAM [Concomitant]
     Active Substance: BROTIZOLAM
     Indication: Product used for unknown indication
     Dosage: 0.25 MG X 2/DAY
     Route: 065

REACTIONS (12)
  - Confusional state [Recovered/Resolved]
  - Lactic acidosis [Unknown]
  - Hypoglycaemia [Recovered/Resolved]
  - Renal failure [Recovered/Resolved]
  - Hepatic failure [Unknown]
  - Ketosis [Unknown]
  - Hepatic steatosis [Unknown]
  - Hypotension [Recovered/Resolved]
  - Blood sodium decreased [Unknown]
  - Blood phosphorus increased [Unknown]
  - Blood chloride decreased [Unknown]
  - Blood albumin decreased [Unknown]
